FAERS Safety Report 5395740-4 (Version None)
Quarter: 2007Q3

REPORT INFORMATION
  Report Type: 
  Country: None (occurrence: None)
  Receive Date: 20070724
  Receipt Date: 20070720
  Transmission Date: 20080115
  Serious: Yes (Hospitalization)
  Sender: FDA-Public Use
  Company Number: US-MERCK-0707USA03393

PATIENT
  Age: 60 Year
  Sex: Male
  Weight: 85 kg

DRUGS (1)
  1. DECADRON [Suspect]
     Route: 048
     Dates: start: 20050101, end: 20060125

REACTIONS (2)
  - MENTAL STATUS CHANGES [None]
  - PNEUMONIA [None]
